FAERS Safety Report 10085968 (Version 1)
Quarter: 2014Q2

REPORT INFORMATION
  Report Type: Spontaneous
  Country: FR (occurrence: None)
  Receive Date: 20140416
  Receipt Date: 20140416
  Transmission Date: 20141212
  Serious: Yes (Hospitalization)
  Sender: FDA-Public Use
  Company Number: FK201401306

PATIENT
  Age: 66 Year
  Sex: Male

DRUGS (5)
  1. DOXORUBICIN [Suspect]
     Indication: MANTLE CELL LYMPHOMA
  2. CYCLOPHOSPHAMIDE [Suspect]
     Indication: MANTLE CELL LYMPHOMA
  3. VINCRISTINE (VINCRISTINE) (VINCRISTINE) [Suspect]
     Indication: MANTLE CELL LYMPHOMA
  4. PREDNISONE (PREDNISONE) (PREDNISONE) [Suspect]
     Indication: MANTLE CELL LYMPHOMA
  5. RITUXIMAB (RITUXIMAB) (RITUXIMAB) [Suspect]
     Indication: MANTLE CELL LYMPHOMA

REACTIONS (15)
  - Asthenia [None]
  - Weight decreased [None]
  - Night sweats [None]
  - Pruritus [None]
  - Lymphadenopathy [None]
  - Anaemia [None]
  - Thrombocytopenia [None]
  - Lymphocytosis [None]
  - Blood lactate dehydrogenase increased [None]
  - Infusion related reaction [None]
  - Hypotension [None]
  - Angioedema [None]
  - Bronchospasm [None]
  - Rash [None]
  - Pyrexia [None]
